FAERS Safety Report 16809998 (Version 1)
Quarter: 2019Q3

REPORT INFORMATION
  Report Type: Spontaneous
  Country: US (occurrence: US)
  Receive Date: 20190725
  Receipt Date: 20190725
  Transmission Date: 20191005
  Serious: Yes (Other)
  Sender: FDA-Public Use
  Company Number: None

PATIENT
  Age: 68 Year
  Sex: Female
  Weight: 70.31 kg

DRUGS (1)
  1. ACYCLOVIR 200MG CAPSULE, CARLSBAD TECH [Suspect]
     Active Substance: ACYCLOVIR
     Indication: HERPES VIRUS INFECTION
     Dosage: ?          QUANTITY:90 UNK - UNKNOWN;OTHER FREQUENCY:1-2 DAILY;?
     Route: 048
     Dates: start: 2003

REACTIONS (5)
  - Infection reactivation [None]
  - Herpes virus infection [None]
  - Arthropod bite [None]
  - Hallucinations, mixed [None]
  - Product quality issue [None]

NARRATIVE: CASE EVENT DATE: 20190703
